FAERS Safety Report 17825476 (Version 1)
Quarter: 2020Q2

REPORT INFORMATION
  Report Type: Other
  Country: CA (occurrence: CA)
  Receive Date: 20200526
  Receipt Date: 20200526
  Transmission Date: 20200714
  Serious: Yes (Hospitalization, Other)
  Sender: FDA-Public Use
  Company Number: CA-PFIZER INC-2020204459

PATIENT
  Age: 59 Year
  Sex: Male

DRUGS (2)
  1. PACLITAXEL. [Suspect]
     Active Substance: PACLITAXEL
     Indication: OESOPHAGEAL ADENOCARCINOMA
     Dosage: UNK UNK, WEEKLY (ONCE EVERY WEEK)
     Route: 042
  2. CARBOPLATIN. [Suspect]
     Active Substance: CARBOPLATIN
     Indication: OESOPHAGEAL ADENOCARCINOMA
     Dosage: UNK
     Route: 065

REACTIONS (9)
  - Pneumonia necrotising [Recovered/Resolved]
  - Abdominal pain upper [Recovered/Resolved]
  - Off label use [Recovered/Resolved]
  - Bacillus infection [Recovered/Resolved]
  - Nausea [Recovered/Resolved]
  - Product use in unapproved indication [Recovered/Resolved]
  - Pulmonary embolism [Recovered/Resolved]
  - Pneumonia [Recovered/Resolved]
  - Haemoptysis [Recovered/Resolved]
